FAERS Safety Report 19147751 (Version 2)
Quarter: 2021Q2

REPORT INFORMATION
  Report Type: Report from Study
  Country: US (occurrence: US)
  Receive Date: 20210416
  Receipt Date: 20210618
  Transmission Date: 20210717
  Serious: No
  Sender: FDA-Public Use
  Company Number: NVSC2021US080962

PATIENT
  Sex: Male

DRUGS (4)
  1. GLATOPA [Suspect]
     Active Substance: GLATIRAMER ACETATE
     Route: 058
  2. GLATOPA [Suspect]
     Active Substance: GLATIRAMER ACETATE
     Route: 058
  3. GLATOPA [Suspect]
     Active Substance: GLATIRAMER ACETATE
     Indication: MULTIPLE SCLEROSIS
     Dosage: 40 MG/KG
     Route: 065
  4. GLATOPA [Suspect]
     Active Substance: GLATIRAMER ACETATE
     Dosage: 40 UNK (3 TIMES A WEEK)
     Route: 058

REACTIONS (8)
  - Injection site pruritus [Unknown]
  - Injection site mass [Unknown]
  - Injection site reaction [Unknown]
  - Drug ineffective [Unknown]
  - Injection site pain [Unknown]
  - Hypersensitivity [Unknown]
  - Injection site erythema [Unknown]
  - Rash [Unknown]
